FAERS Safety Report 14568646 (Version 1)
Quarter: 2018Q1

REPORT INFORMATION
  Report Type: Spontaneous
  Country: US (occurrence: AX)
  Receive Date: 20180219
  Receipt Date: 20180219
  Transmission Date: 20180509
  Serious: Yes (Other)
  Sender: FDA-Public Use
  Company Number: None

PATIENT
  Age: 26 Year
  Sex: Male
  Weight: 85.95 kg

DRUGS (3)
  1. QUETIAPINE FUMARATE. [Suspect]
     Active Substance: QUETIAPINE FUMARATE
     Indication: BIPOLAR DISORDER
     Route: 048
     Dates: start: 20171201, end: 20180219
  2. WELLBUTRIN [Concomitant]
     Active Substance: BUPROPION HYDROCHLORIDE
     Dates: start: 20140101, end: 20180219
  3. LAMICTAL [Concomitant]
     Active Substance: LAMOTRIGINE
     Dates: start: 20140718, end: 20180219

REACTIONS (11)
  - Product substitution issue [None]
  - Constipation [None]
  - Feeling abnormal [None]
  - Insurance issue [None]
  - Fatigue [None]
  - Social problem [None]
  - Poor quality sleep [None]
  - Apathy [None]
  - Depression [None]
  - Cognitive disorder [None]
  - Somnolence [None]

NARRATIVE: CASE EVENT DATE: 20171201
